FAERS Safety Report 25007500 (Version 1)
Quarter: 2025Q1

REPORT INFORMATION
  Report Type: Spontaneous
  Country: US (occurrence: US)
  Receive Date: 20250225
  Receipt Date: 20250225
  Transmission Date: 20250409
  Serious: Yes (Other)
  Sender: ADVANZ PHARMA
  Company Number: US-ADVANZ PHARMA-202502001247

PATIENT

DRUGS (2)
  1. HYDROXYCHLOROQUINE [Suspect]
     Active Substance: HYDROXYCHLOROQUINE
  2. TIZANIDINE [Suspect]
     Active Substance: TIZANIDINE

REACTIONS (14)
  - Rheumatoid arthritis [Unknown]
  - Sjogren^s syndrome [Unknown]
  - Inflammation [Unknown]
  - Epistaxis [Unknown]
  - Arthralgia [Unknown]
  - Pain in extremity [Unknown]
  - Back pain [Unknown]
  - Hypertension [Unknown]
  - Dry mouth [Unknown]
  - Dry eye [Unknown]
  - Joint swelling [Unknown]
  - Dry skin [Unknown]
  - Joint stiffness [Unknown]
  - Drug ineffective [Unknown]
